FAERS Safety Report 5703446-4 (Version None)
Quarter: 2008Q2

REPORT INFORMATION
  Report Type: 
  Country: None (occurrence: None)
  Receive Date: 20080411
  Receipt Date: 20080401
  Transmission Date: 20081010
  Serious: Yes (Other)
  Sender: FDA-Public Use
  Company Number: CA-PFIZER INC-2008029430

PATIENT
  Sex: Female

DRUGS (2)
  1. CELEBREX [Suspect]
     Route: 048
  2. ALESSE [Concomitant]
     Route: 048

REACTIONS (4)
  - MEDICATION ERROR [None]
  - PALPITATIONS [None]
  - PHARYNGEAL OEDEMA [None]
  - RASH GENERALISED [None]
